FAERS Safety Report 9225451 (Version 1)
Quarter: 2013Q2

REPORT INFORMATION
  Report Type: Spontaneous
  Country: US (occurrence: US)
  Receive Date: 20130411
  Receipt Date: 20130411
  Transmission Date: 20140414
  Serious: Yes (Hospitalization, Other)
  Sender: FDA-Public Use
  Company Number: US-SANOFI-AVENTIS-2013SA036744

PATIENT
  Age: 69 Year
  Sex: Male
  Weight: 97.5 kg

DRUGS (17)
  1. PLAVIX [Suspect]
     Indication: MYOCARDIAL INFARCTION
     Dates: start: 2008
  2. PLAVIX [Suspect]
     Indication: STENT PLACEMENT
     Dates: start: 2008
  3. ERBITUX [Suspect]
     Dates: start: 20130326
  4. ERBITUX [Suspect]
     Dates: start: 20130402
  5. CLONIDINE [Concomitant]
  6. MIRALAX [Concomitant]
  7. ASPIRIN [Concomitant]
  8. NORVASC [Concomitant]
     Indication: BLOOD PRESSURE
  9. METOPROLOL [Concomitant]
     Indication: BLOOD PRESSURE
  10. SIMVASTATIN [Concomitant]
  11. TERAZOSIN [Concomitant]
     Indication: BLOOD PRESSURE
  12. DIOVANE [Concomitant]
  13. GABAPENTIN [Concomitant]
  14. LORTAB [Concomitant]
  15. HYDROCHLOROTHIAZIDE [Concomitant]
  16. LAXATIVES [Concomitant]
  17. OMEPRAZOLE [Concomitant]

REACTIONS (4)
  - Lung neoplasm malignant [Not Recovered/Not Resolved]
  - Pulmonary mass [Not Recovered/Not Resolved]
  - Lymphoma [Not Recovered/Not Resolved]
  - Rash [Not Recovered/Not Resolved]
